FAERS Safety Report 8372587-8 (Version None)
Quarter: 2012Q2

REPORT INFORMATION
  Report Type: 
  Country: None (occurrence: None)
  Receive Date: 20120521
  Receipt Date: 20120516
  Transmission Date: 20120825
  Serious: Yes (Death, Hospitalization, Other)
  Sender: FDA-Public Use
  Company Number: PHHY2011CA111879

PATIENT
  Sex: Male

DRUGS (1)
  1. CLOZARIL [Suspect]
     Indication: SCHIZOPHRENIA
     Dosage: UNK
     Route: 048
     Dates: start: 20110727

REACTIONS (7)
  - VOMITING [None]
  - HYPOXIA [None]
  - BLADDER CANCER [None]
  - BLADDER DISORDER [None]
  - URINARY TRACT INFECTION [None]
  - PNEUMONIA ASPIRATION [None]
  - NAUSEA [None]
